FAERS Safety Report 6886805-6 (Version None)
Quarter: 2010Q3

REPORT INFORMATION
  Report Type: 
  Country: None (occurrence: None)
  Receive Date: 20100730
  Receipt Date: 20100721
  Transmission Date: 20110219
  Serious: Yes (Other)
  Sender: FDA-Public Use
  Company Number: US-PFIZER INC-2010075457

PATIENT
  Sex: Male
  Weight: 104.31 kg

DRUGS (2)
  1. GEODON [Suspect]
     Indication: DEPRESSION
     Dosage: 80 MG 1 X DAILY AT HS
     Dates: start: 20091201
  2. GEODON [Suspect]
     Indication: ANXIETY DISORDER

REACTIONS (2)
  - SEDATION [None]
  - SLEEP APNOEA SYNDROME [None]
